FAERS Safety Report 17587444 (Version 1)
Quarter: 2020Q1

REPORT INFORMATION
  Report Type: Spontaneous
  Country: US (occurrence: US)
  Receive Date: 20200326
  Receipt Date: 20200326
  Transmission Date: 20200409
  Serious: No
  Sender: FDA-Public Use
  Company Number: US-JNJFOC-20200331320

PATIENT
  Age: 80 Year
  Sex: Female
  Weight: 47.22 kg

DRUGS (4)
  1. ASPRIN [Concomitant]
     Active Substance: ASPIRIN
     Route: 048
  2. XARELTO [Suspect]
     Active Substance: RIVAROXABAN
     Indication: CEREBROVASCULAR ACCIDENT PROPHYLAXIS
  3. XARELTO [Suspect]
     Active Substance: RIVAROXABAN
     Indication: ATRIAL FIBRILLATION
     Route: 048
     Dates: start: 20200318
  4. METOPROLOL. [Concomitant]
     Active Substance: METOPROLOL
     Dosage: 1/2 PILL
     Route: 048

REACTIONS (3)
  - Gastric disorder [Not Recovered/Not Resolved]
  - Nausea [Not Recovered/Not Resolved]
  - Pallor [Not Recovered/Not Resolved]

NARRATIVE: CASE EVENT DATE: 20200319
